FAERS Safety Report 7384498-5 (Version None)
Quarter: 2011Q1

REPORT INFORMATION
  Report Type: 
  Country: None (occurrence: None)
  Receive Date: 20110330
  Receipt Date: 20110324
  Transmission Date: 20110831
  Serious: Yes (Hospitalization)
  Sender: FDA-Public Use
  Company Number: FR-PFIZER INC-2011065312

PATIENT
  Age: 90 Year
  Sex: Female

DRUGS (9)
  1. OMEPRAZOLE [Concomitant]
     Dosage: UNK
     Route: 048
  2. PARACETAMOL [Concomitant]
     Dosage: UNK
     Route: 048
  3. ATARAX [Suspect]
     Dosage: UNK
     Route: 048
  4. DOMPERIDONE [Suspect]
     Dosage: UNK
     Route: 048
  5. LASIX [Concomitant]
     Dosage: 40 MG, UNK
     Route: 048
  6. SKENAN [Suspect]
     Dosage: UNK
     Route: 048
  7. LYRICA [Suspect]
     Dosage: UNK
     Route: 048
  8. TRANSIPEG [Concomitant]
     Dosage: UNK
     Route: 048
  9. ACTISKENAN [Suspect]
     Dosage: UNK
     Route: 048

REACTIONS (5)
  - PELVIC FRACTURE [None]
  - FALL [None]
  - EXTRAPYRAMIDAL DISORDER [None]
  - CONFUSIONAL STATE [None]
  - TREMOR [None]
